FAERS Safety Report 7105409-3 (Version None)
Quarter: 2010Q4

REPORT INFORMATION
  Report Type: 
  Country: None (occurrence: None)
  Receive Date: 20101110
  Receipt Date: 20101027
  Transmission Date: 20110411
  Serious: Yes (Life-Threatening, Hospitalization)
  Sender: FDA-Public Use
  Company Number: 1000017174

PATIENT
  Age: 63 Year
  Sex: Male

DRUGS (6)
  1. ESCITALOPRAM [Suspect]
     Indication: DEPRESSION
     Dosage: 15 MG (15 MG, 1 IN 1 D), ORAL
     Route: 048
     Dates: start: 20100901, end: 20101004
  2. OLANZAPINE [Suspect]
     Indication: DEPRESSION
     Dosage: 10 MG (10 MG, 1 IN 1 D), ORAL
     Route: 048
     Dates: start: 20100801, end: 20101004
  3. LITHIUM (LITHIUM) (300 MILLIGRAM, TABLETS) [Suspect]
     Indication: DEPRESSION
     Dosage: 900 MG (900 MG, 1 IN 1 D)
     Dates: start: 20081001, end: 20101004
  4. LORAZEPAM [Concomitant]
  5. BISOPROLOL FUMARATE [Concomitant]
  6. LANZOPRAZOL (LANZOPRAZOL) (LANZOPRAZOL) [Concomitant]

REACTIONS (6)
  - ANTIDEPRESSANT DRUG LEVEL ABOVE THERAPEUTIC [None]
  - ANTIDEPRESSANT DRUG LEVEL BELOW THERAPEUTIC [None]
  - DEPRESSED LEVEL OF CONSCIOUSNESS [None]
  - MUSCLE RIGIDITY [None]
  - RHABDOMYOLYSIS [None]
  - TREMOR [None]
